FAERS Safety Report 21381153 (Version 1)
Quarter: 2022Q3

REPORT INFORMATION
  Report Type: Spontaneous
  Country: US (occurrence: None)
  Receive Date: 20220926
  Receipt Date: 20220926
  Transmission Date: 20221027
  Serious: Yes (Other)
  Sender: FDA-Public Use
  Company Number: None

PATIENT
  Age: 70 Year
  Sex: Female
  Weight: 112 kg

DRUGS (5)
  1. PAXLOVID [Suspect]
     Active Substance: NIRMATRELVIR\RITONAVIR
     Indication: COVID-19
     Dosage: FREQUENCY : TWICE A DAY;?
     Route: 048
  2. albuterol 90 mcg inhaler [Concomitant]
     Dates: start: 20220914
  3. BENZONATATE [Concomitant]
     Active Substance: BENZONATATE
     Dates: start: 20220914
  4. vitamin D 1000 Unit Tab [Concomitant]
     Dates: start: 20220711
  5. Omeprazole 20 mg EC capsule [Concomitant]
     Dates: start: 20220222

REACTIONS (3)
  - Somnambulism [None]
  - Akathisia [None]
  - Anxiety [None]

NARRATIVE: CASE EVENT DATE: 20220915
